FAERS Safety Report 10620641 (Version 1)
Quarter: 2014Q4

REPORT INFORMATION
  Report Type: Report from Study
  Country: US (occurrence: US)
  Receive Date: 20141202
  Receipt Date: 20141202
  Transmission Date: 20150529
  Serious: Yes (Death)
  Sender: FDA-Public Use
  Company Number: US-BAXTER-2014BAX069898

PATIENT
  Age: 18 Year
  Sex: Male

DRUGS (7)
  1. VINCRISTINE [Suspect]
     Active Substance: VINCRISTINE
     Dosage: ON DAYS 1 AND 8, CYCLE B, REPEATED FOR NINE TOTAL CYCLES
     Route: 042
  2. CYCLOPHOSPHAMIDE FOR INJECTION, USP [Suspect]
     Active Substance: CYCLOPHOSPHAMIDE
     Indication: MEDULLOBLASTOMA
     Dosage: OVER 30-60 MINUTES ON DAYS 1 AND 2, CYCLE C, REPEATED FOR NINE TOTAL CYCLES
     Route: 042
  3. TEMOZOLOMIDE. [Suspect]
     Active Substance: TEMOZOLOMIDE
     Indication: MEDULLOBLASTOMA
     Dosage: AT BEDTIME ON DAYS 1-5, CYCLE A, REPEATED FOR NINE TOTAL CYCLES
     Route: 048
  4. VINCRISTINE [Suspect]
     Active Substance: VINCRISTINE
     Indication: MEDULLOBLASTOMA
     Dosage: ON DAYS 1 AND 8, CYCLE A, REPEATED FOR NINE TOTAL CYCLES
     Route: 042
  5. CARBOPLATIN. [Suspect]
     Active Substance: CARBOPLATIN
     Indication: MEDULLOBLASTOMA
     Dosage: OVER 1-3 HOURS ON DAY 1, CYCLE B, REPEATED FOR NINE TOTAL CYCLES
     Route: 042
  6. ETOPOSIDE. [Suspect]
     Active Substance: ETOPOSIDE
     Indication: MEDULLOBLASTOMA
     Dosage: AT BEDTIME ON DAYS 1-21, - CYCLE A, REPEATED FOR NINE TOTAL CYCLES
     Route: 048
  7. VINCRISTINE [Suspect]
     Active Substance: VINCRISTINE
     Dosage: ON DAYS 1 AND 8, CYCLE C, REPEATED FOR NINE TOTAL CYCLES
     Route: 042

REACTIONS (2)
  - Neurotoxicity [Fatal]
  - Hydrocephalus [Fatal]
